FAERS Safety Report 4697268-3 (Version None)
Quarter: 2005Q2

REPORT INFORMATION
  Report Type: 
  Country: None (occurrence: None)
  Receive Date: 20050622
  Receipt Date: 20031030
  Transmission Date: 20051028
  Serious: Yes (Hospitalization)
  Sender: FDA-Public Use
  Company Number: 2003AP03903

PATIENT
  Age: 78 Year
  Sex: Female

DRUGS (4)
  1. ARIMIDEX [Suspect]
     Indication: BREAST CANCER
     Route: 048
     Dates: start: 20030101, end: 20031009
  2. NOLVADEX [Suspect]
     Indication: BREAST CANCER
     Route: 048
  3. ZANTAC [Concomitant]
     Route: 048
  4. ADALAT [Concomitant]
     Route: 048

REACTIONS (6)
  - DRUG INEFFECTIVE [None]
  - OEDEMA PERIPHERAL [None]
  - OESTROGEN RECEPTOR ASSAY POSITIVE [None]
  - PRURITUS [None]
  - PURPURA [None]
  - SKIN ULCER [None]
